FAERS Safety Report 6457263-0 (Version None)
Quarter: 2009Q4

REPORT INFORMATION
  Report Type: 
  Country: None (occurrence: None)
  Receive Date: 20091125
  Receipt Date: 20091123
  Transmission Date: 20100525
  Serious: No
  Sender: FDA-Public Use
  Company Number: US-B.I. PHARMACEUTICALS,INC./RIDGEFIELD-2009-BP-13650BP

PATIENT
  Sex: Female

DRUGS (2)
  1. SPIRIVA [Suspect]
     Route: 055
     Dates: start: 20091124
  2. SPIRIVA [Suspect]
     Route: 055
     Dates: start: 20070101, end: 20091119

REACTIONS (2)
  - BLOOD URINE PRESENT [None]
  - URINARY TRACT INFECTION [None]
